FAERS Safety Report 15854417 (Version 1)
Quarter: 2019Q1

REPORT INFORMATION
  Report Type: Spontaneous
  Country: FR (occurrence: FR)
  Receive Date: 20190122
  Receipt Date: 20190122
  Transmission Date: 20190417
  Serious: Yes (Other)
  Sender: FDA-Public Use
  Company Number: FR-VELOXIS PHARMACEUTICALS, INC.-2019VELFR1347

PATIENT
  Age: 59 Year
  Sex: Male

DRUGS (3)
  1. MMF [Suspect]
     Active Substance: MYCOPHENOLATE MOFETIL
     Indication: IMMUNOSUPPRESSANT DRUG THERAPY
     Dosage: UNK
     Route: 065
  2. POSACONAZOLE [Interacting]
     Active Substance: POSACONAZOLE
     Indication: DERMATOPHYTOSIS
     Dosage: UNK
     Route: 065
  3. ENVARSUS XR [Suspect]
     Active Substance: TACROLIMUS
     Indication: RENAL TRANSPLANT
     Dosage: UNK
     Route: 048

REACTIONS (10)
  - Neutropenia [Unknown]
  - Thrombocytopenia [Unknown]
  - Cholestasis [Unknown]
  - Drug interaction [Unknown]
  - Trichophytosis [Recovered/Resolved]
  - Dermatophytosis [Recovered/Resolved]
  - Trichophytic granuloma [Recovered/Resolved]
  - Hidradenitis [Unknown]
  - Neuropathy peripheral [Unknown]
  - Cell death [Unknown]
